FAERS Safety Report 7649213-6 (Version None)
Quarter: 2011Q3

REPORT INFORMATION
  Report Type: 
  Country: None (occurrence: None)
  Receive Date: 20110802
  Receipt Date: 20110721
  Transmission Date: 20111222
  Serious: Yes (Hospitalization)
  Sender: FDA-Public Use
  Company Number: ES-TEVA-285457ISR

PATIENT
  Age: 22 Year
  Sex: Female

DRUGS (1)
  1. LEVONORGESTREL [Suspect]
     Indication: POST COITAL CONTRACEPTION
     Route: 065

REACTIONS (1)
  - DEEP VEIN THROMBOSIS [None]
